FAERS Safety Report 5755070-5 (Version None)
Quarter: 2008Q2

REPORT INFORMATION
  Report Type: 
  Country: None (occurrence: None)
  Receive Date: 20080528
  Receipt Date: 20080516
  Transmission Date: 20081010
  Serious: Yes (Death, Life-Threatening, Hospitalization)
  Sender: FDA-Public Use
  Company Number: 20085003

PATIENT
  Age: 33 Year

DRUGS (1)
  1. LIORESAL [Suspect]
     Indication: MUSCLE SPASTICITY
     Dosage: MCG, DAILY, INTRATHECAL
     Route: 039

REACTIONS (6)
  - ABDOMINAL DISTENSION [None]
  - HYPOTENSION [None]
  - PERITONITIS [None]
  - PNEUMONIA [None]
  - PYREXIA [None]
  - RESPIRATORY DISTRESS [None]
